FAERS Safety Report 9527570 (Version 1)
Quarter: 2013Q1

REPORT INFORMATION
  Report Type: Spontaneous
  Country: US (occurrence: None)
  Receive Date: 20130314
  Receipt Date: 20130314
  Transmission Date: 20140127
  Serious: No
  Sender: FDA-Public Use
  Company Number: 1212USA001770

PATIENT
  Age: 55 Year
  Sex: Male

DRUGS (3)
  1. VICTRELIS (BOCEPREVIR) CAPSULE, 200 MG [Suspect]
     Indication: HEPATITIS C
     Dosage: 1 UNIT OF USE BOTTLE OF 12-4 CAPSULES
     Route: 048
     Dates: start: 20120523
  2. PEGASYS [Concomitant]
  3. RIBASPHERE [Concomitant]

REACTIONS (2)
  - Glaucoma [None]
  - Injury corneal [None]
